FAERS Safety Report 22708554 (Version 12)
Quarter: 2024Q4

REPORT INFORMATION
  Report Type: Report from Study
  Country: US (occurrence: US)
  Receive Date: 20230715
  Receipt Date: 20241128
  Transmission Date: 20250115
  Serious: Yes (Other)
  Sender: NOVARTIS
  Company Number: US-002147023-NVSC2023US156930

PATIENT
  Sex: Female

DRUGS (1)
  1. KESIMPTA [Suspect]
     Active Substance: OFATUMUMAB
     Indication: Multiple sclerosis
     Dosage: 20 MG, QMO
     Route: 058
     Dates: start: 20230708

REACTIONS (12)
  - Hallucination [Unknown]
  - Dementia Alzheimer^s type [Unknown]
  - Memory impairment [Not Recovered/Not Resolved]
  - Respiratory tract congestion [Recovered/Resolved]
  - Pain [Recovered/Resolved]
  - Burning sensation [Unknown]
  - Tremor [Unknown]
  - Movement disorder [Unknown]
  - Muscle tightness [Unknown]
  - Speech disorder [Unknown]
  - Limb discomfort [Not Recovered/Not Resolved]
  - Inappropriate schedule of product administration [Unknown]
